FAERS Safety Report 6522776-X (Version None)
Quarter: 2009Q4

REPORT INFORMATION
  Report Type: 
  Country: None (occurrence: None)
  Receive Date: 20091230
  Receipt Date: 20091222
  Transmission Date: 20100525
  Serious: Yes (Other)
  Sender: FDA-Public Use
  Company Number: AT-ABBOTT-09P-009-0615992-00

PATIENT
  Sex: Male
  Weight: 95 kg

DRUGS (5)
  1. HUMIRA [Suspect]
     Indication: PSORIASIS
     Route: 058
     Dates: start: 20070401
  2. COSAAR PLUS [Concomitant]
     Indication: HYPERTENSION
     Dosage: 1-0-1
  3. THROMOB-ASS [Concomitant]
     Indication: HYPERTENSION
  4. EBETREXAT TABLETTEN [Concomitant]
     Indication: PSORIASIS
     Dates: start: 20070401
  5. FOLSAN [Concomitant]
     Indication: PSORIASIS

REACTIONS (2)
  - ANTINUCLEAR ANTIBODY INCREASED [None]
  - DNA ANTIBODY [None]
